FAERS Safety Report 24090767 (Version 2)
Quarter: 2024Q3

REPORT INFORMATION
  Report Type: Spontaneous
  Country: US (occurrence: US)
  Receive Date: 20240715
  Receipt Date: 20240801
  Transmission Date: 20241017
  Serious: Yes (Hospitalization)
  Sender: BRISTOL MYERS SQUIBB
  Company Number: US-BRISTOL-MYERS SQUIBB COMPANY-2024-111572

PATIENT
  Age: 65 Year
  Sex: Female

DRUGS (2)
  1. THALOMID [Suspect]
     Active Substance: THALIDOMIDE
     Indication: Plasma cell myeloma
     Route: 048
     Dates: start: 20140912
  2. THALOMID [Suspect]
     Active Substance: THALIDOMIDE
     Dosage: FREQUENCY: 28
     Dates: start: 20210817

REACTIONS (1)
  - Illness [Unknown]
